FAERS Safety Report 6336073-9 (Version None)
Quarter: 2009Q3

REPORT INFORMATION
  Report Type: 
  Country: None (occurrence: None)
  Receive Date: 20090828
  Receipt Date: 20090821
  Transmission Date: 20100115
  Serious: Yes (Other)
  Sender: FDA-Public Use
  Company Number: SPV1-2009-01691

PATIENT
  Sex: Female

DRUGS (2)
  1. ANAGRELIDE HCL [Suspect]
     Indication: ESSENTIAL THROMBOCYTHAEMIA
     Dates: end: 20090101
  2. ANAGRELIDE HCL [Suspect]
     Indication: ESSENTIAL THROMBOCYTHAEMIA
     Dates: start: 20090101

REACTIONS (4)
  - MYALGIA [None]
  - POLYSEROSITIS [None]
  - PYREXIA [None]
  - WEIGHT DECREASED [None]
